FAERS Safety Report 26206173 (Version 1)
Quarter: 2025Q4

REPORT INFORMATION
  Report Type: Report from Study
  Country: JP (occurrence: JP)
  Receive Date: 20251229
  Receipt Date: 20251229
  Transmission Date: 20260117
  Serious: Yes (Hospitalization)
  Sender: CSL BEHRING
  Company Number: JP-BEH-2025230525

PATIENT
  Age: 5 Year
  Sex: Male
  Weight: 23.1 kg

DRUGS (9)
  1. PRIVIGEN [Suspect]
     Active Substance: HUMAN IMMUNOGLOBULIN G
     Indication: Hypogammaglobulinaemia
     Dosage: 50 ML, TOT
     Route: 042
     Dates: start: 20220525, end: 20220525
  2. PRIVIGEN [Suspect]
     Active Substance: HUMAN IMMUNOGLOBULIN G
     Indication: Primary immunodeficiency syndrome
     Dosage: 50 ML, TOT
     Route: 042
     Dates: start: 20220706, end: 20220706
  3. PRIVIGEN [Suspect]
     Active Substance: HUMAN IMMUNOGLOBULIN G
     Indication: Gene mutation
     Dosage: 50 ML, TOT
     Route: 042
     Dates: start: 20220817, end: 20220817
  4. PRIVIGEN [Suspect]
     Active Substance: HUMAN IMMUNOGLOBULIN G
     Indication: Infection prophylaxis
     Dosage: 50 ML, TOT
     Route: 042
     Dates: start: 20221117, end: 20221117
  5. PRIVIGEN [Suspect]
     Active Substance: HUMAN IMMUNOGLOBULIN G
     Dosage: 50 ML, TOT
     Route: 042
     Dates: start: 20221221, end: 20221221
  6. PRIVIGEN [Suspect]
     Active Substance: HUMAN IMMUNOGLOBULIN G
     Dosage: 50 ML, TOT
     Route: 042
     Dates: start: 20230126, end: 20230126
  7. PRIVIGEN [Suspect]
     Active Substance: HUMAN IMMUNOGLOBULIN G
     Dosage: 50 ML, TOT
     Route: 042
     Dates: start: 20230308, end: 20230308
  8. PRIVIGEN [Suspect]
     Active Substance: HUMAN IMMUNOGLOBULIN G
     Dosage: 50 ML, TOT
     Route: 042
     Dates: start: 20230406, end: 20230406
  9. PRIVIGEN [Suspect]
     Active Substance: HUMAN IMMUNOGLOBULIN G
     Dosage: 50 ML, TOT
     Route: 042
     Dates: start: 20230511, end: 20230511

REACTIONS (3)
  - Hospitalisation [Unknown]
  - Off label use [Unknown]
  - Underdose [Unknown]

NARRATIVE: CASE EVENT DATE: 20220101
